FAERS Safety Report 9586594 (Version 3)
Quarter: 2014Q3

REPORT INFORMATION
  Report Type: Spontaneous
  Country: FR (occurrence: FR)
  Receive Date: 20131003
  Receipt Date: 20140722
  Transmission Date: 20150326
  Serious: Yes (Life-Threatening)
  Sender: FDA-Public Use
  Company Number: FR-PFIZER INC-2013277673

PATIENT
  Age: 22 Year
  Sex: Male

DRUGS (6)
  1. ADVIL [Suspect]
     Active Substance: IBUPROFEN
     Indication: PYREXIA
     Dosage: THREE TABLETS/DAY
     Route: 048
     Dates: start: 20130824, end: 201309
  2. AMOXICILLIN. [Concomitant]
     Active Substance: AMOXICILLIN
     Indication: DYSPNOEA
  3. AMOXICILLIN. [Concomitant]
     Active Substance: AMOXICILLIN
     Indication: OROPHARYNGEAL PAIN
  4. AMOXICILLIN. [Concomitant]
     Active Substance: AMOXICILLIN
     Indication: PYREXIA
     Dosage: UNK
     Dates: start: 20130827, end: 20130903
  5. ADVIL [Suspect]
     Active Substance: IBUPROFEN
     Indication: DYSPNOEA
  6. ADVIL [Suspect]
     Active Substance: IBUPROFEN
     Indication: OROPHARYNGEAL PAIN

REACTIONS (6)
  - Jugular vein thrombosis [Recovered/Resolved]
  - Lung disorder [Recovered/Resolved]
  - Pharyngotonsillitis [Recovered/Resolved]
  - Lemierre syndrome [Recovered/Resolved]
  - Lung abscess [Recovered/Resolved]
  - Abdominal pain [Unknown]

NARRATIVE: CASE EVENT DATE: 2013
